FAERS Safety Report 12427922 (Version 1)
Quarter: 2016Q2

REPORT INFORMATION
  Report Type: Spontaneous
  Country: US (occurrence: None)
  Receive Date: 20160601
  Receipt Date: 20160601
  Transmission Date: 20160815
  Serious: Yes (Life-Threatening)
  Sender: FDA-Public Use
  Company Number: None

PATIENT
  Age: 24 Year
  Sex: Female
  Weight: 90.72 kg

DRUGS (1)
  1. RISPERIDONE. [Suspect]
     Active Substance: RISPERIDONE
     Indication: HOSPITALISATION
     Dosage: 7 TABLETS ONCE A DAY TAKEN UNDER THE TONGUE
     Dates: start: 20160306, end: 20160318

REACTIONS (14)
  - Dizziness [None]
  - Memory impairment [None]
  - Heart rate decreased [None]
  - Suppressed lactation [None]
  - Dyskinesia [None]
  - Chills [None]
  - Muscle twitching [None]
  - Seizure [None]
  - Dehydration [None]
  - Sensory disturbance [None]
  - Hypersomnia [None]
  - Grip strength decreased [None]
  - Cough [None]
  - Pyrexia [None]

NARRATIVE: CASE EVENT DATE: 20160318
